FAERS Safety Report 21684987 (Version 6)
Quarter: 2023Q2

REPORT INFORMATION
  Report Type: Spontaneous
  Country: US (occurrence: US)
  Receive Date: 20221206
  Receipt Date: 20230412
  Transmission Date: 20230722
  Serious: No
  Sender: FDA-Public Use
  Company Number: US-BRISTOL-MYERS SQUIBB COMPANY-2022-148174

PATIENT
  Age: 60 Year
  Sex: Female

DRUGS (3)
  1. ORENCIA [Suspect]
     Active Substance: ABATACEPT
     Indication: Psoriasis
     Route: 058
     Dates: start: 20220826
  2. ORENCIA [Suspect]
     Active Substance: ABATACEPT
     Indication: Psoriatic arthropathy
     Dosage: FREQUENCY-WEEKLY
     Route: 058
     Dates: start: 202208
  3. ORENCIA [Suspect]
     Active Substance: ABATACEPT
     Dosage: FREQUENCY- EVERY WEEKLY
     Route: 058
     Dates: start: 20220819

REACTIONS (17)
  - Drug ineffective [Unknown]
  - Skin fissures [Unknown]
  - Oedema [Unknown]
  - Secretion discharge [Unknown]
  - Gait disturbance [Unknown]
  - Fall [Unknown]
  - Hypoaesthesia [Unknown]
  - Hepatic steatosis [Unknown]
  - Pain [Unknown]
  - Erythema [Unknown]
  - Pruritus [Unknown]
  - Burning sensation [Unknown]
  - Blood glucose increased [Unknown]
  - Depression [Unknown]
  - Arthralgia [Unknown]
  - Diarrhoea [Unknown]
  - Migraine [Unknown]
